FAERS Safety Report 25589856 (Version 1)
Quarter: 2025Q3

REPORT INFORMATION
  Report Type: Report from Study
  Country: US (occurrence: US)
  Receive Date: 20250722
  Receipt Date: 20250722
  Transmission Date: 20251020
  Serious: Yes (Hospitalization)
  Sender: MYLAN
  Company Number: US-MYLANLABS-2025M1060747

PATIENT

DRUGS (44)
  1. VENLAFAXINE [Suspect]
     Active Substance: VENLAFAXINE HYDROCHLORIDE
     Indication: Product used for unknown indication
  2. VENLAFAXINE [Suspect]
     Active Substance: VENLAFAXINE HYDROCHLORIDE
     Route: 048
  3. VENLAFAXINE [Suspect]
     Active Substance: VENLAFAXINE HYDROCHLORIDE
     Route: 048
  4. VENLAFAXINE [Suspect]
     Active Substance: VENLAFAXINE HYDROCHLORIDE
  5. RIVASTIGMINE [Suspect]
     Active Substance: RIVASTIGMINE
     Indication: Toxicity to various agents
  6. RIVASTIGMINE [Suspect]
     Active Substance: RIVASTIGMINE
     Route: 048
  7. RIVASTIGMINE [Suspect]
     Active Substance: RIVASTIGMINE
     Route: 048
  8. RIVASTIGMINE [Suspect]
     Active Substance: RIVASTIGMINE
  9. QUETIAPINE [Suspect]
     Active Substance: QUETIAPINE
     Indication: Product used for unknown indication
  10. QUETIAPINE [Suspect]
     Active Substance: QUETIAPINE
     Route: 048
  11. QUETIAPINE [Suspect]
     Active Substance: QUETIAPINE
     Route: 048
  12. QUETIAPINE [Suspect]
     Active Substance: QUETIAPINE
  13. DIAZEPAM [Concomitant]
     Active Substance: DIAZEPAM
     Indication: Toxicity to various agents
  14. DIAZEPAM [Concomitant]
     Active Substance: DIAZEPAM
     Route: 042
  15. DIAZEPAM [Concomitant]
     Active Substance: DIAZEPAM
     Route: 042
  16. DIAZEPAM [Concomitant]
     Active Substance: DIAZEPAM
  17. DIAZEPAM [Concomitant]
     Active Substance: DIAZEPAM
     Indication: Toxicity to various agents
  18. DIAZEPAM [Concomitant]
     Active Substance: DIAZEPAM
     Route: 048
  19. DIAZEPAM [Concomitant]
     Active Substance: DIAZEPAM
     Route: 048
  20. DIAZEPAM [Concomitant]
     Active Substance: DIAZEPAM
  21. LORAZEPAM [Concomitant]
     Active Substance: LORAZEPAM
     Indication: Toxicity to various agents
  22. LORAZEPAM [Concomitant]
     Active Substance: LORAZEPAM
     Route: 042
  23. LORAZEPAM [Concomitant]
     Active Substance: LORAZEPAM
     Route: 042
  24. LORAZEPAM [Concomitant]
     Active Substance: LORAZEPAM
  25. LORAZEPAM [Concomitant]
     Active Substance: LORAZEPAM
     Indication: Toxicity to various agents
  26. LORAZEPAM [Concomitant]
     Active Substance: LORAZEPAM
     Route: 048
  27. LORAZEPAM [Concomitant]
     Active Substance: LORAZEPAM
     Route: 048
  28. LORAZEPAM [Concomitant]
     Active Substance: LORAZEPAM
  29. MIDAZOLAM [Concomitant]
     Active Substance: MIDAZOLAM
     Indication: Toxicity to various agents
  30. MIDAZOLAM [Concomitant]
     Active Substance: MIDAZOLAM
     Route: 042
  31. MIDAZOLAM [Concomitant]
     Active Substance: MIDAZOLAM
     Route: 042
  32. MIDAZOLAM [Concomitant]
     Active Substance: MIDAZOLAM
  33. LAMOTRIGINE [Concomitant]
     Active Substance: LAMOTRIGINE
     Indication: Product used for unknown indication
  34. LAMOTRIGINE [Concomitant]
     Active Substance: LAMOTRIGINE
     Route: 065
  35. LAMOTRIGINE [Concomitant]
     Active Substance: LAMOTRIGINE
     Route: 065
  36. LAMOTRIGINE [Concomitant]
     Active Substance: LAMOTRIGINE
  37. COCAINE [Concomitant]
     Active Substance: COCAINE
     Indication: Product used for unknown indication
  38. COCAINE [Concomitant]
     Active Substance: COCAINE
     Route: 065
  39. COCAINE [Concomitant]
     Active Substance: COCAINE
     Route: 065
  40. COCAINE [Concomitant]
     Active Substance: COCAINE
  41. ALCOHOL [Concomitant]
     Active Substance: ALCOHOL
     Indication: Product used for unknown indication
  42. ALCOHOL [Concomitant]
     Active Substance: ALCOHOL
     Route: 065
  43. ALCOHOL [Concomitant]
     Active Substance: ALCOHOL
     Route: 065
  44. ALCOHOL [Concomitant]
     Active Substance: ALCOHOL

REACTIONS (6)
  - Toxicity to various agents [Recovered/Resolved]
  - Hyperhidrosis [Recovered/Resolved]
  - Sedation [Recovered/Resolved]
  - Tachycardia [Recovered/Resolved]
  - Intentional overdose [Recovered/Resolved]
  - Off label use [Unknown]
